FAERS Safety Report 5923027-7 (Version None)
Quarter: 2008Q4

REPORT INFORMATION
  Report Type: 
  Country: None (occurrence: None)
  Receive Date: 20081018
  Receipt Date: 20081007
  Transmission Date: 20090506
  Serious: Yes (Other)
  Sender: FDA-Public Use
  Company Number: JP-PFIZER INC-2008077185

PATIENT
  Sex: Female

DRUGS (5)
  1. DETRUSITOL LA [Suspect]
     Indication: HYPERTONIC BLADDER
     Dosage: DAILY DOSE:4MG
     Route: 048
     Dates: start: 20080828, end: 20080905
  2. LASIX [Concomitant]
     Route: 048
     Dates: start: 20080928
  3. ALDACTONE [Concomitant]
     Route: 048
     Dates: start: 20080928
  4. DIGOSIN [Concomitant]
     Route: 048
     Dates: start: 20080928
  5. FRANDOL [Concomitant]
     Route: 048
     Dates: start: 20080801

REACTIONS (5)
  - ANOREXIA [None]
  - ASTHENIA [None]
  - DEPRESSED MOOD [None]
  - HYDRONEPHROSIS [None]
  - URINARY RETENTION [None]
